FAERS Safety Report 9082454 (Version 1)
Quarter: 2013Q1

REPORT INFORMATION
  Report Type: Report from Study
  Country: US (occurrence: US)
  Receive Date: 20130130
  Receipt Date: 20130130
  Transmission Date: 20140127
  Serious: No
  Sender: FDA-Public Use
  Company Number: US-ABBOTT-12P-163-0965336-00

PATIENT
  Age: 31 Year
  Sex: Female

DRUGS (12)
  1. HUMIRA 40 MG/0.8 ML PEN [Suspect]
     Indication: CROHN^S DISEASE
     Dates: start: 201102
  2. GABAPENTIN [Concomitant]
     Indication: PRODUCT USED FOR UNKNOWN INDICATION
  3. FIORICET [Concomitant]
     Indication: MIGRAINE
  4. LEXAPRO [Concomitant]
     Indication: DEPRESSION
     Dosage: DAILY
  5. AMITRIPTYLINE [Concomitant]
     Indication: INSOMNIA
     Dosage: DAILY AT BEDTIME
  6. 6-MP [Concomitant]
     Indication: PRODUCT USED FOR UNKNOWN INDICATION
     Dosage: DAILY
  7. ROBINUL FORTE [Concomitant]
     Indication: IMPAIRED GASTRIC EMPTYING
  8. ROBINUL FORTE [Concomitant]
     Indication: GASTROOESOPHAGEAL REFLUX DISEASE
  9. PROPRANOLOL [Concomitant]
     Indication: HYPERTENSION
  10. ROBAXIN [Concomitant]
     Indication: MUSCLE RELAXANT THERAPY
     Dosage: AS REQUIRED
  11. CHOLESTYRAMINE [Concomitant]
     Indication: SHORT-BOWEL SYNDROME
     Dosage: 4 GRAMS IN 8 OUNCE WATER DAILY
  12. VICODIN [Concomitant]
     Indication: PAIN
     Dosage: AS REQUIRED

REACTIONS (4)
  - Insomnia [Not Recovered/Not Resolved]
  - Muscle spasms [Not Recovered/Not Resolved]
  - Abdominal pain [Not Recovered/Not Resolved]
  - Crohn^s disease [Not Recovered/Not Resolved]
